FAERS Safety Report 6699854-8 (Version None)
Quarter: 2010Q2

REPORT INFORMATION
  Report Type: 
  Country: None (occurrence: None)
  Receive Date: 20100428
  Receipt Date: 20100414
  Transmission Date: 20101027
  Serious: Yes (Other)
  Sender: FDA-Public Use
  Company Number: GB-RANBAXY-2010RR-33295

PATIENT
  Age: 67 Year
  Sex: Male
  Weight: 85.72 kg

DRUGS (12)
  1. CIPROFLOXACIN [Suspect]
     Indication: CHRONIC OBSTRUCTIVE PULMONARY DISEASE
     Dosage: 50 MG, BID
     Route: 048
     Dates: start: 20100318, end: 20100326
  2. CLARITHROMYCIN [Concomitant]
  3. DIPRONEL PMO [Concomitant]
  4. FLUCONAZOLE [Concomitant]
  5. IPRATROPIUM BROMIDE [Concomitant]
  6. METFORMIN AND ROSIGLITAZONE [Concomitant]
  7. MORPHINE [Concomitant]
  8. PREDNISOLONE [Concomitant]
  9. SALBUTAMOL [Concomitant]
  10. SERETIDE [Concomitant]
  11. UNIPHYL [Concomitant]
  12. ZOPICLONE [Concomitant]

REACTIONS (4)
  - ABASIA [None]
  - BALANCE DISORDER [None]
  - PAIN [None]
  - TENDONITIS [None]
